FAERS Safety Report 20660557 (Version 1)
Quarter: 2022Q1

REPORT INFORMATION
  Report Type: Spontaneous
  Country: US (occurrence: US)
  Receive Date: 20220331
  Receipt Date: 20220331
  Transmission Date: 20220423
  Serious: No
  Sender: FDA-Public Use
  Company Number: ae006US22

PATIENT
  Age: 67 Year
  Sex: Male
  Weight: 91.63 kg

DRUGS (1)
  1. ASCLERA [Suspect]
     Active Substance: POLIDOCANOL
     Indication: Sclerotherapy
     Route: 065
     Dates: start: 20211210, end: 20211210

REACTIONS (3)
  - Dizziness [Unknown]
  - Heart rate increased [Unknown]
  - Hypertension [Unknown]

NARRATIVE: CASE EVENT DATE: 20211210
